FAERS Safety Report 23359628 (Version 2)
Quarter: 2024Q2

REPORT INFORMATION
  Report Type: Spontaneous
  Country: US (occurrence: US)
  Receive Date: 20240103
  Receipt Date: 20240405
  Transmission Date: 20240716
  Serious: Yes (Other)
  Sender: FDA-Public Use
  Company Number: US-BRISTOL-MYERS SQUIBB COMPANY-2023-188497

PATIENT
  Age: 76 Year
  Sex: Female

DRUGS (2)
  1. LENALIDOMIDE [Suspect]
     Active Substance: LENALIDOMIDE
     Indication: Protein total abnormal
     Dosage: TAKE 1 CAPSULE (25MG) BY MOUTH WHOLE WITH WATER AT THE SAME TIME EACH DAY ON DAYS 1-21 OF EACH 28 DA
     Route: 048
     Dates: start: 20230915
  2. LENALIDOMIDE [Suspect]
     Active Substance: LENALIDOMIDE
     Dosage: FREQUENCY: TAKE 1 CAPSULE BY MOUTH EVERY DAY FOR 21 DAYS THEN OFF FOR 7 DAYS
     Route: 048
     Dates: start: 202402

REACTIONS (4)
  - Cellulitis [Recovering/Resolving]
  - Off label use [Unknown]
  - Decreased appetite [Unknown]
  - Infected bite [Unknown]

NARRATIVE: CASE EVENT DATE: 20230915
